FAERS Safety Report 7852889-1 (Version None)
Quarter: 2011Q4

REPORT INFORMATION
  Report Type: 
  Country: None (occurrence: None)
  Receive Date: 20111026
  Receipt Date: 20111017
  Transmission Date: 20120403
  Serious: Yes (Other)
  Sender: FDA-Public Use
  Company Number: US-ASTRAZENECA-2011SE62695

PATIENT
  Age: 41 Year
  Sex: Female

DRUGS (1)
  1. SEROQUEL [Suspect]
     Route: 048

REACTIONS (6)
  - INSOMNIA [None]
  - CONVULSION [None]
  - SELF-MEDICATION [None]
  - MALAISE [None]
  - THERAPY CESSATION [None]
  - DISTURBANCE IN ATTENTION [None]
